FAERS Safety Report 5258633-9 (Version None)
Quarter: 2007Q1

REPORT INFORMATION
  Report Type: 
  Country: None (occurrence: None)
  Receive Date: 20070305
  Receipt Date: 20070216
  Transmission Date: 20070707
  Serious: Yes (Hospitalization)
  Sender: FDA-Public Use
  Company Number: 224359

PATIENT
  Age: 62 Year
  Sex: Male
  Weight: 86 kg

DRUGS (10)
  1. AVASTIN [Suspect]
     Indication: COLORECTAL CANCER METASTATIC
     Dosage: 5 MG/KG,Q2W, INTRAVENOUS
     Route: 042
     Dates: start: 20050517, end: 20060410
  2. FLUOROURACIL [Suspect]
     Indication: COLORECTAL CANCER METASTATIC
     Dosage: INTRAVENOUS
     Route: 042
  3. LEUCOVORIN CALCIUM [Suspect]
     Indication: COLORECTAL CANCER METASTATIC
     Dosage: INTRAVENOUS
     Route: 042
  4. IRINOTECAN HCL [Suspect]
     Indication: COLORECTAL CANCER METASTATIC
     Dosage: INTRAVENOUS
     Route: 042
  5. PREVACID [Concomitant]
  6. AVANDIA (ROSIGLITAZONE MELEATE) [Concomitant]
  7. LIPITOR [Concomitant]
  8. CIPROFLOXACIN [Concomitant]
  9. HALCION [Concomitant]
  10. FLONASE [Concomitant]

REACTIONS (4)
  - BILE DUCT STENOSIS [None]
  - COLON CANCER METASTATIC [None]
  - HEPATIC MASS [None]
  - MALIGNANT NEOPLASM PROGRESSION [None]
